FAERS Safety Report 8236511-0 (Version None)
Quarter: 2012Q1

REPORT INFORMATION
  Report Type: 
  Country: None (occurrence: None)
  Receive Date: 20120327
  Receipt Date: 20120319
  Transmission Date: 20120608
  Serious: Yes (Other)
  Sender: FDA-Public Use
  Company Number: US-ASTELLAS-2012US003036

PATIENT
  Sex: Male

DRUGS (8)
  1. PREDNISONE TAB [Concomitant]
     Indication: LIVER TRANSPLANT
     Dosage: UNK
     Route: 065
  2. ANTACID [Concomitant]
     Indication: PRODUCT USED FOR UNKNOWN INDICATION
     Dosage: UNK
     Route: 065
  3. ZENAPAX [Concomitant]
     Indication: LIVER TRANSPLANT
     Dosage: 1 MG/KG, TOTAL DOSE
     Route: 065
  4. GANCICLOVIR [Concomitant]
     Indication: ANTIVIRAL PROPHYLAXIS
     Dosage: UNK
     Route: 065
  5. MYCOPHENOLATE MOFETIL (CELLCEPT) [Concomitant]
     Indication: LIVER TRANSPLANT
     Dosage: 15 MG/KG, BID
     Route: 048
  6. METHYLPREDNISOLONE [Concomitant]
     Indication: LIVER TRANSPLANT
     Dosage: 20 MG/KG, TOTAL DOSE
     Route: 065
  7. TACROLIMUS [Suspect]
     Indication: LIVER TRANSPLANT
     Dosage: 0.05 MG/KG, BID
     Route: 048
  8. TRIMETHOPRIM + SULFAMETHOXAZOLE [Concomitant]
     Indication: ANTIFUNGAL PROPHYLAXIS
     Dosage: UNK
     Route: 065

REACTIONS (1)
  - CARDIOMYOPATHY [None]
